FAERS Safety Report 6074113-5 (Version None)
Quarter: 2009Q1

REPORT INFORMATION
  Report Type: 
  Country: None (occurrence: None)
  Receive Date: 20090211
  Receipt Date: 20090204
  Transmission Date: 20090719
  Serious: Yes (Other)
  Sender: FDA-Public Use
  Company Number: B0557450A

PATIENT
  Age: 38 Year
  Sex: Male

DRUGS (5)
  1. SERETIDE [Suspect]
     Indication: ASTHMA
     Dosage: 1PUFF TWICE PER DAY
     Route: 055
  2. VENTOLIN [Suspect]
     Indication: ASTHMA
     Dosage: 100MCG AS REQUIRED
     Route: 055
  3. FERROUS SULPHATE [Suspect]
     Dosage: 200MG THREE TIMES PER DAY
     Route: 048
  4. METFORMIN HCL [Concomitant]
     Dosage: 1000MG PER DAY
     Route: 048
  5. GLICLAZIDE [Concomitant]
     Dosage: 80MG PER DAY
     Route: 048

REACTIONS (4)
  - DYSPNOEA [None]
  - GASTROINTESTINAL CARCINOMA [None]
  - LOWER RESPIRATORY TRACT INFECTION [None]
  - TYPE 2 DIABETES MELLITUS [None]
